FAERS Safety Report 6014460-6 (Version None)
Quarter: 2008Q4

REPORT INFORMATION
  Report Type: 
  Country: None (occurrence: None)
  Receive Date: 20081219
  Receipt Date: 20081010
  Transmission Date: 20090506
  Serious: No
  Sender: FDA-Public Use
  Company Number: A0735387A

PATIENT
  Age: 83 Year
  Sex: Male

DRUGS (7)
  1. AVODART [Suspect]
     Dosage: 1CAP PER DAY
     Route: 048
  2. AMBIEN [Concomitant]
  3. WELLBUTRIN [Concomitant]
  4. ARICEPT [Concomitant]
  5. LORAZEPAM [Concomitant]
  6. SIMVASTATIN [Concomitant]
  7. THYROID MEDICATION [Concomitant]

REACTIONS (2)
  - NOCTURIA [None]
  - PRODUCT QUALITY ISSUE [None]
